FAERS Safety Report 10227315 (Version 2)
Quarter: 2014Q3

REPORT INFORMATION
  Report Type: Spontaneous
  Country: JP (occurrence: JP)
  Receive Date: 20140610
  Receipt Date: 20140708
  Transmission Date: 20150326
  Serious: Yes (Hospitalization, Other)
  Sender: FDA-Public Use
  Company Number: JP-ELI_LILLY_AND_COMPANY-JP201406000057

PATIENT
  Age: 83 Year
  Sex: Female

DRUGS (8)
  1. MUCOSTA [Concomitant]
     Active Substance: REBAMIPIDE
     Dosage: UNK
  2. NEUROTROPIN                        /06251301/ [Concomitant]
  3. OPALMON [Concomitant]
     Active Substance: LIMAPROST
     Dosage: UNK
  4. PEON [Concomitant]
     Active Substance: ZALTOPROFEN
     Dosage: UNK
  5. LYRICA [Concomitant]
     Active Substance: PREGABALIN
  6. FORTEO [Suspect]
     Active Substance: TERIPARATIDE
     Indication: OSTEOPOROSIS
     Dosage: 20 UG, QD
     Route: 058
     Dates: start: 20140516, end: 20140521
  7. METHOTREXATE [Concomitant]
     Active Substance: METHOTREXATE
  8. PREDONINE [Concomitant]
     Active Substance: PREDNISOLONE\PREDNISOLONE ACETATE\PREDNISOLONE SODIUM SUCCINATE

REACTIONS (5)
  - Altered state of consciousness [Unknown]
  - Pyrexia [Recovered/Resolved]
  - Palpitations [Recovered/Resolved]
  - Pyrexia [Recovered/Resolved]
  - Palpitations [Recovering/Resolving]

NARRATIVE: CASE EVENT DATE: 20140518
